FAERS Safety Report 5728946-2 (Version None)
Quarter: 2008Q2

REPORT INFORMATION
  Report Type: 
  Country: None (occurrence: None)
  Receive Date: 20080505
  Receipt Date: 20080505
  Transmission Date: 20081010
  Serious: No
  Sender: FDA-Public Use
  Company Number: None

PATIENT
  Sex: Male

DRUGS (1)
  1. PROGRAF [Suspect]
     Dosage: CAPSULE

REACTIONS (3)
  - LIVER TRANSPLANT REJECTION [None]
  - MEDICATION ERROR [None]
  - WRONG DRUG ADMINISTERED [None]
